FAERS Safety Report 5146242-1 (Version None)
Quarter: 2006Q4

REPORT INFORMATION
  Report Type: 
  Country: None (occurrence: None)
  Receive Date: 20061106
  Receipt Date: 20061106
  Transmission Date: 20070319
  Serious: Yes (Hospitalization)
  Sender: FDA-Public Use
  Company Number: None

PATIENT
  Sex: Female
  Weight: 82.2 kg

DRUGS (3)
  1. CISPLATIN [Suspect]
     Dosage: 92 MG
  2. DOXORUBICIN HYDROCHLORIDE [Suspect]
     Dosage: 83 MG
  3. TAXOL [Suspect]
     Dosage: 196 MG

REACTIONS (10)
  - AGITATION [None]
  - CARDIAC OUTPUT DECREASED [None]
  - DISSEMINATED INTRAVASCULAR COAGULATION [None]
  - DYSPNOEA [None]
  - HYPOTENSION [None]
  - ILL-DEFINED DISORDER [None]
  - ISCHAEMIC HEPATITIS [None]
  - OXYGEN SATURATION DECREASED [None]
  - SEPTIC SHOCK [None]
  - URINE OUTPUT DECREASED [None]
